FAERS Safety Report 10798542 (Version 3)
Quarter: 2015Q3

REPORT INFORMATION
  Report Type: Report from Study
  Country: US (occurrence: US)
  Receive Date: 20150216
  Receipt Date: 20150819
  Transmission Date: 20151125
  Serious: No
  Sender: FDA-Public Use
  Company Number: US-GILEAD-2015-0137387

PATIENT
  Age: 48 Year
  Sex: Male

DRUGS (24)
  1. AMBRISENTAN [Suspect]
     Active Substance: AMBRISENTAN
     Indication: PULMONARY HYPERTENSION
     Dosage: 10 MG, QD
     Route: 065
     Dates: start: 20150202
  2. MULTIVITAMIN                       /07504101/ [Concomitant]
     Active Substance: VITAMINS
  3. FLUCONAZOLE. [Concomitant]
     Active Substance: FLUCONAZOLE
  4. QUETIAPINE [Concomitant]
     Active Substance: QUETIAPINE
  5. FUROSEMIDE. [Concomitant]
     Active Substance: FUROSEMIDE
  6. BUSPIRONE [Concomitant]
     Active Substance: BUSPIRONE HYDROCHLORIDE
  7. LANTUS [Concomitant]
     Active Substance: INSULIN GLARGINE
  8. ACYCLOVIR                          /00587301/ [Concomitant]
     Active Substance: ACYCLOVIR
  9. OMEPRAZOLE. [Concomitant]
     Active Substance: OMEPRAZOLE
  10. INTELENCE [Concomitant]
     Active Substance: ETRAVIRINE
  11. ADVAIR HFA [Concomitant]
     Active Substance: FLUTICASONE PROPIONATE\SALMETEROL XINAFOATE
  12. OXYCODONE [Concomitant]
     Active Substance: OXYCODONE
  13. CLINDAMYCIN [Concomitant]
     Active Substance: CLINDAMYCIN\CLINDAMYCIN PHOSPHATE
  14. POLYETHYLENE GLYCOL [Concomitant]
     Active Substance: POLYETHYLENE GLYCOLS
  15. PREDNISONE. [Concomitant]
     Active Substance: PREDNISONE
  16. ALBUTEROL                          /00139501/ [Concomitant]
     Active Substance: ALBUTEROL
  17. TRUVADA [Concomitant]
     Active Substance: EMTRICITABINE\TENOFOVIR DISOPROXIL FUMARATE
  18. CALCIUM + D3                       /01483701/ [Concomitant]
  19. SPIRONOLACTONE. [Concomitant]
     Active Substance: SPIRONOLACTONE
  20. AMBRISENTAN [Suspect]
     Active Substance: AMBRISENTAN
     Indication: HIV INFECTION
  21. TESTOSTERONE. [Concomitant]
     Active Substance: TESTOSTERONE
  22. PROMETHAZINE [Concomitant]
     Active Substance: PROMETHAZINE\PROMETHAZINE HYDROCHLORIDE
  23. ZOLPIDEM [Concomitant]
     Active Substance: ZOLPIDEM\ZOLPIDEM TARTRATE
  24. CALCIUM ACETATE. [Concomitant]
     Active Substance: CALCIUM ACETATE

REACTIONS (2)
  - Epistaxis [Unknown]
  - Nasal congestion [Unknown]

NARRATIVE: CASE EVENT DATE: 20150211
